FAERS Safety Report 7072283-3 (Version None)
Quarter: 2010Q4

REPORT INFORMATION
  Report Type: 
  Country: None (occurrence: None)
  Receive Date: 20101029
  Receipt Date: 20100201
  Transmission Date: 20110411
  Serious: No
  Sender: FDA-Public Use
  Company Number: A0837401A

PATIENT
  Age: 62 Year
  Sex: Female

DRUGS (16)
  1. ADVAIR DISKUS 100/50 [Suspect]
     Indication: ASTHMA
     Dosage: 1PUFF TWICE PER DAY
     Route: 055
  2. NEURONTIN [Concomitant]
  3. HYDROCHLOROTHIAZIDE [Concomitant]
  4. ROBAXIN [Concomitant]
  5. BIPAP [Concomitant]
  6. RITALIN [Concomitant]
  7. LISINOPRIL [Concomitant]
  8. TRAZODONE [Concomitant]
     Indication: SLEEP DISORDER
  9. PERCOCET [Concomitant]
  10. LOVAZA [Concomitant]
  11. ASCORBIC ACID [Concomitant]
  12. CENTRUM SILVER [Concomitant]
  13. CATAPLEX B [Concomitant]
  14. VITAMIN D [Concomitant]
  15. CALCIUM [Concomitant]
  16. ALBUTEROL [Concomitant]

REACTIONS (4)
  - DYSPNOEA [None]
  - ILL-DEFINED DISORDER [None]
  - NASOPHARYNGITIS [None]
  - PRODUCT QUALITY ISSUE [None]
